FAERS Safety Report 9892173 (Version 2)
Quarter: 2014Q1

REPORT INFORMATION
  Report Type: Spontaneous
  Country: US (occurrence: US)
  Receive Date: 20140212
  Receipt Date: 20140212
  Transmission Date: 20141002
  Serious: No
  Sender: FDA-Public Use
  Company Number: US-MALLINCKRODT-T201304906

PATIENT
  Age: 63 Year
  Sex: Female
  Weight: 56.69 kg

DRUGS (5)
  1. FENTANYL TRANSDERMAL SYSTEM [Suspect]
     Indication: BACK PAIN
     Dosage: 25 UG/HR, Q72H
     Route: 062
     Dates: start: 20131114, end: 20131116
  2. LORAZEPAM [Concomitant]
     Indication: SLEEP DISORDER
     Dosage: 1 MG, QD, PRN
     Route: 048
  3. LORAZEPAM [Concomitant]
     Indication: DEPRESSION
     Dosage: 2 MG QHS PRN
  4. ACID REDUCER-EQUATE                      /00550802/ [Concomitant]
     Indication: DYSPEPSIA
     Dosage: 150 MG, QD PRN
  5. DILAUDID [Concomitant]
     Indication: PRODUCT USED FOR UNKNOWN INDICATION
     Dosage: 4 MG, TID
     Route: 048

REACTIONS (6)
  - Respiration abnormal [Recovered/Resolved]
  - Urticaria [Recovered/Resolved]
  - Headache [Recovered/Resolved]
  - Diarrhoea [Recovered/Resolved]
  - Dizziness [Recovered/Resolved]
  - Inappropriate schedule of drug administration [Recovered/Resolved]
